FAERS Safety Report 9806525 (Version 1)
Quarter: 2014Q1

REPORT INFORMATION
  Report Type: Report from Study
  Country: BR (occurrence: BR)
  Receive Date: 20140109
  Receipt Date: 20140109
  Transmission Date: 20141002
  Serious: Yes (Other)
  Sender: FDA-Public Use
  Company Number: PHHY2014BR002178

PATIENT
  Sex: Female

DRUGS (6)
  1. ACLASTA [Suspect]
     Indication: OSTEOPENIA
     Dosage: 5 MG, YEARLY
     Route: 042
     Dates: start: 2012
  2. PONDERA [Concomitant]
     Indication: DEPRESSION
     Dosage: 1 DF, APPROXIMA 5 YEARS AGO
     Route: 048
  3. LOSARTAN [Concomitant]
     Indication: HYPERTENSION
     Dosage: 1 DF, QD, APPROXIMATELY 6 MONTHS AGO
     Route: 048
  4. PENTOXIFYLLINE [Concomitant]
     Indication: CARDIOVASCULAR DISORDER
     Dosage: APPROXIMATELY 1 YEAR AGO
     Route: 048
  5. CALCIUM D3                         /00944201/ [Concomitant]
     Dosage: UNK UKN, UNK
     Dates: start: 2012
  6. VITAMIN D [Concomitant]
     Dosage: UNK UKN, UNK
     Dates: start: 2013

REACTIONS (4)
  - Dementia Alzheimer^s type [Not Recovered/Not Resolved]
  - Memory impairment [Not Recovered/Not Resolved]
  - Ischaemia [Not Recovered/Not Resolved]
  - Stress [Not Recovered/Not Resolved]
